FAERS Safety Report 9531071 (Version 1)
Quarter: 2013Q3

REPORT INFORMATION
  Report Type: Spontaneous
  Country: US (occurrence: US)
  Receive Date: 20130918
  Receipt Date: 20130918
  Transmission Date: 20140515
  Serious: Yes (Hospitalization)
  Sender: FDA-Public Use
  Company Number: US-BAYER-2013-110611

PATIENT
  Age: 16 Year
  Sex: Female
  Weight: 63 kg

DRUGS (5)
  1. OCELLA [Suspect]
     Indication: OVARIAN CYST
  2. FLEXERIL [Concomitant]
     Dosage: 5 MG, 1 TAB ( TABLET) 3 TIMES DAILY AS NEEDED
     Route: 048
  3. PROZAC [Concomitant]
     Dosage: 20 MG, UNK
     Route: 048
  4. AUGMENTIN [Concomitant]
  5. PYRIDIUM [Concomitant]

REACTIONS (2)
  - Pelvic venous thrombosis [Recovering/Resolving]
  - Deep vein thrombosis [Recovered/Resolved]
